FAERS Safety Report 11729943 (Version 2)
Quarter: 2015Q4

REPORT INFORMATION
  Report Type: Report from Study
  Country: US (occurrence: US)
  Receive Date: 20151112
  Receipt Date: 20151210
  Transmission Date: 20160304
  Serious: Yes (Hospitalization, Other)
  Sender: FDA-Public Use
  Company Number: US-GILEAD-2015-0181804

PATIENT
  Age: 59 Year
  Sex: Female

DRUGS (2)
  1. AMBRISENTAN [Suspect]
     Active Substance: AMBRISENTAN
     Indication: PULMONARY HYPERTENSION
     Dosage: 5 MG, QD
     Route: 065
     Dates: start: 20151008
  2. SILDENAFIL. [Concomitant]
     Active Substance: SILDENAFIL

REACTIONS (11)
  - Vision blurred [Unknown]
  - Cough [Unknown]
  - Respiratory arrest [Unknown]
  - Loss of consciousness [Unknown]
  - Migraine [Unknown]
  - Hallucination [Unknown]
  - Oxygen saturation decreased [Unknown]
  - Abdominal distension [Not Recovered/Not Resolved]
  - Speech disorder [Unknown]
  - Emotional disorder [Unknown]
  - Amnesia [Unknown]
